FAERS Safety Report 7874481-5 (Version None)
Quarter: 2011Q4

REPORT INFORMATION
  Report Type: 
  Country: None (occurrence: None)
  Receive Date: 20111030
  Receipt Date: 20110520
  Transmission Date: 20120403
  Serious: No
  Sender: FDA-Public Use
  Company Number: US-AMGEN-USASP2011026360

PATIENT
  Sex: Female

DRUGS (10)
  1. ZOLOFT [Concomitant]
     Dosage: 25 MG, UNK
  2. FOSAMAX [Concomitant]
     Dosage: 40 MG, UNK
  3. VITAMIN D [Concomitant]
     Dosage: UNK
  4. ENBREL [Suspect]
     Indication: PRODUCT USED FOR UNKNOWN INDICATION
     Dosage: 50 MG, QWK
     Route: 058
  5. MORPHINE SULFATE [Concomitant]
     Dosage: 15 MG, UNK
  6. PHENERGAN HCL [Concomitant]
     Dosage: 25 MG, UNK
  7. PRILOSEC [Concomitant]
     Dosage: 20 MG, UNK
  8. XANAX [Concomitant]
     Dosage: 2 MG, UNK
  9. MS CONTIN [Concomitant]
     Dosage: 200 MG, UNK
  10. PREDNISONE [Concomitant]
     Dosage: 1 MG, UNK

REACTIONS (1)
  - PRURITUS [None]
